FAERS Safety Report 6725389-X (Version None)
Quarter: 2010Q2

REPORT INFORMATION
  Report Type: 
  Country: None (occurrence: None)
  Receive Date: 20100514
  Receipt Date: 20100430
  Transmission Date: 20101027
  Serious: Yes (Hospitalization, Other)
  Sender: FDA-Public Use
  Company Number: CA-ELI_LILLY_AND_COMPANY-CA201001003354

PATIENT
  Sex: Female

DRUGS (22)
  1. FORTEO [Suspect]
     Indication: OSTEOPOROSIS
     Dosage: 20 UG, DAILY (1/D)
     Route: 058
     Dates: start: 20080916, end: 20091229
  2. CALCIUM [Concomitant]
  3. CENTRUM /00554501/ [Concomitant]
  4. VITAMIN C [Concomitant]
  5. VITAMIN D [Concomitant]
  6. PLAVIX [Concomitant]
  7. CELEBREX [Concomitant]
     Dosage: UNK, AS NEEDED
  8. GEN-SIMVASTATIN [Concomitant]
  9. ASPIRIN [Concomitant]
  10. BISOPROLOL SANDOZ [Concomitant]
     Dosage: 2.5 MG, DAILY (1/D)
  11. SYNTHROID [Concomitant]
  12. LOSEC I.V. [Concomitant]
  13. CLONAZEPAM [Concomitant]
     Dosage: UNK, AS NEEDED
  14. NITROGLYCERIN [Concomitant]
     Dosage: UNK, AS NEEDED
  15. ALTACE [Concomitant]
     Dosage: 2.5 MG, DAILY (1/D)
  16. LASIX [Concomitant]
     Dosage: 20 MG, OTHER
  17. K-DUR [Concomitant]
     Dosage: UNK, OTHER
  18. WARFARIN SODIUM [Concomitant]
     Dosage: 1.25 MG, DAILY (1/D)
  19. DOMPERIDONE [Concomitant]
     Dosage: 10 MG, 3/D
  20. OMEPRAZOLE [Concomitant]
  21. TYLENOL (CAPLET) [Concomitant]
     Dosage: UNK, AS NEEDED
  22. DIURETICS [Concomitant]
     Indication: CARDIAC FAILURE CONGESTIVE

REACTIONS (13)
  - ALANINE AMINOTRANSFERASE INCREASED [None]
  - ASPARTATE AMINOTRANSFERASE INCREASED [None]
  - ATRIAL FIBRILLATION [None]
  - BLOOD ALKALINE PHOSPHATASE INCREASED [None]
  - BLOOD BILIRUBIN INCREASED [None]
  - CARDIAC FAILURE CONGESTIVE [None]
  - HYPOKALAEMIA [None]
  - HYPOTENSION [None]
  - MITRAL VALVE INCOMPETENCE [None]
  - PNEUMONIA [None]
  - RENAL FAILURE [None]
  - THROMBOTIC STROKE [None]
  - TRICUSPID VALVE INCOMPETENCE [None]
